FAERS Safety Report 4351638-1 (Version None)
Quarter: 2004Q2

REPORT INFORMATION
  Report Type: 
  Country: None (occurrence: None)
  Receive Date: 20040503
  Receipt Date: 20040427
  Transmission Date: 20050107
  Serious: Yes (Life-Threatening)
  Sender: FDA-Public Use
  Company Number: US-BRISTOL-MYERS SQUIBB COMPANY-12572236

PATIENT
  Age: 29 Year
  Sex: Male
  Weight: 87 kg

DRUGS (7)
  1. EFAVIRENZ [Suspect]
     Route: 048
     Dates: start: 20020919
  2. STAVUDINE [Suspect]
     Route: 048
     Dates: start: 20021224
  3. ABACAVIR [Suspect]
     Route: 048
     Dates: start: 20020919
  4. LAMIVUDINE [Suspect]
     Route: 048
     Dates: start: 20020919
  5. ZIDOVUDINE [Suspect]
     Route: 048
     Dates: start: 20020919, end: 20021224
  6. DAPSONE [Concomitant]
  7. ENALAPRIL MALEATE [Concomitant]

REACTIONS (1)
  - HYPOGLYCAEMIA [None]
